FAERS Safety Report 7730960-2 (Version None)
Quarter: 2011Q3

REPORT INFORMATION
  Report Type: 
  Country: None (occurrence: None)
  Receive Date: 20110906
  Receipt Date: 20110824
  Transmission Date: 20111222
  Serious: Yes (Hospitalization)
  Sender: FDA-Public Use
  Company Number: BR-BAYER-2010-002036

PATIENT
  Age: 72 Year
  Sex: Female
  Weight: 56.3 kg

DRUGS (44)
  1. ACETYLSALICYLIC ACID SRT [Interacting]
     Indication: ACUTE CORONARY SYNDROME
     Route: 048
  2. RANITIDINE [Concomitant]
  3. PANTOPRAZOLE [Concomitant]
  4. AMLODIPINE [Concomitant]
  5. SPIRONOLACTONE [Concomitant]
  6. CARVEDILOL [Concomitant]
  7. CLOPIDOGREL [Interacting]
     Indication: ACUTE CORONARY SYNDROME
     Route: 048
     Dates: end: 20101013
  8. DEXAMETHASONE [Concomitant]
  9. DOBUTAMINE HCL [Concomitant]
  10. DEXTROSE [Concomitant]
  11. ACETYLCYSTEINE [Concomitant]
  12. ETHYLHYDROXYETHYLCELLULOSE [Concomitant]
  13. ACETYLSALICYLIC ACID SRT [Interacting]
     Dates: end: 20101013
  14. ACETYLSALICYLIC ACID SRT [Interacting]
     Dates: end: 20101018
  15. ENOXAPARIN [Interacting]
  16. CEFAZOLIN [Concomitant]
  17. TRAMADOL HYDROCHLORIDE [Concomitant]
  18. ACETAMINOPHEN [Concomitant]
  19. BLINDED RIVAROXABAN [Suspect]
     Indication: ACUTE CORONARY SYNDROME
     Dosage: DOSAGE FORM: TABLET
     Route: 048
     Dates: start: 20101022, end: 20101203
  20. MOXIFLOXACIN [Concomitant]
  21. MAGNESIUM SULFATE [Concomitant]
  22. METOPROLOL SUCCINATE [Concomitant]
  23. BROMOPRIDE [Concomitant]
  24. ATORVASTATIN [Concomitant]
  25. SIMETHICONE [Concomitant]
  26. NITROGLYCERIN [Concomitant]
  27. MORPHINE [Concomitant]
  28. DIPYRONE TAB [Concomitant]
  29. FUROSEMIDE [Concomitant]
  30. TRIMETAZIDINE [Concomitant]
  31. POTASSIUM CHLORIDE [Concomitant]
  32. SACCHAROMYCES BOULARDII [Concomitant]
  33. OMEPRAZOLE [Concomitant]
  34. HALOPERIDOL [Concomitant]
  35. CAPTOPRIL [Concomitant]
  36. OFTAN CATACHROM [ADENOS,BENZALK CHLORIDE,CYTOCHROME C,B3,SUCC NA+] [Concomitant]
  37. CLOPIDOGREL [Interacting]
     Dates: end: 20101018
  38. PROMETHAZINE [Concomitant]
  39. DESLANOSIDE [Concomitant]
  40. CLOPIDOGREL [Interacting]
     Dates: start: 20101030
  41. POLYETHYLENE GLYCOL [Concomitant]
  42. NPH INSULIN [Concomitant]
  43. REGULAR INSULIN [Concomitant]
  44. ISOSORBIDE DINITRATE [Concomitant]

REACTIONS (4)
  - ANGINA PECTORIS [None]
  - PLEURAL EFFUSION [None]
  - PULMONARY EMBOLISM [None]
  - HAEMATOCHEZIA [None]
